FAERS Safety Report 10005720 (Version 1)
Quarter: 2014Q1

REPORT INFORMATION
  Report Type: Spontaneous
  Country: US (occurrence: US)
  Receive Date: 20140313
  Receipt Date: 20140313
  Transmission Date: 20141002
  Serious: No
  Sender: FDA-Public Use
  Company Number: US-BIOGENIDEC-2014BI021341

PATIENT
  Sex: Female

DRUGS (6)
  1. TECFIDERA [Suspect]
     Indication: MULTIPLE SCLEROSIS
     Route: 048
  2. TECFIDERA [Suspect]
     Indication: MULTIPLE SCLEROSIS
     Route: 048
  3. LISINOPRIL [Concomitant]
  4. CO Q-10 [Concomitant]
  5. FISH OIL [Concomitant]
  6. CVS VITAMIN D [Concomitant]

REACTIONS (5)
  - Cough [Unknown]
  - Rhinorrhoea [Unknown]
  - Flushing [Unknown]
  - Nausea [Unknown]
  - Abdominal discomfort [Unknown]
